FAERS Safety Report 4352391-8 (Version None)
Quarter: 2004Q2

REPORT INFORMATION
  Report Type: 
  Country: None (occurrence: None)
  Receive Date: 20040423
  Receipt Date: 20030929
  Transmission Date: 20050107
  Serious: Yes (Hospitalization)
  Sender: FDA-Public Use
  Company Number: CIP03002548

PATIENT
  Age: 23 Year
  Sex: Female
  Weight: 56.7 kg

DRUGS (3)
  1. MACROBID [Suspect]
     Indication: URINARY TRACT INFECTION
     Dosage: 1 TABLET TWICE DAILY FOR 2 DOSES, ORAL
     Route: 048
     Dates: start: 20030723
  2. DONNATAL (PHENOBARBITAL, HYOSYAMINE SULFATE, HYOSCINE HYDROBROMIDE, AT [Concomitant]
  3. LEVONORGESTREL W./ETHINYLESTRADIOL (ETHINYLESTRADIOL, LEVONORGESTREL) [Concomitant]

REACTIONS (3)
  - ABDOMINAL PAIN [None]
  - HEPATITIS [None]
  - LIVER FUNCTION TEST ABNORMAL [None]
